FAERS Safety Report 10276435 (Version 2)
Quarter: 2014Q3

REPORT INFORMATION
  Report Type: Spontaneous
  Country: US (occurrence: US)
  Receive Date: 20140703
  Receipt Date: 20140818
  Transmission Date: 20150326
  Serious: No
  Sender: FDA-Public Use
  Company Number: US-009507513-1406USA012009

PATIENT
  Age: 54 Year
  Sex: Male

DRUGS (3)
  1. PEGINTRON [Suspect]
     Active Substance: PEGINTERFERON ALFA-2B
     Indication: CHRONIC HEPATITIS C
     Dosage: 150MCG/0.5ML, QW
     Route: 058
     Dates: start: 20140518, end: 20140811
  2. RIBASPHERE RIBAPAK [Suspect]
     Active Substance: RIBAVIRIN
     Indication: CHRONIC HEPATITIS C
     Dosage: TOTAL DAILY DOSE 1200MG
     Route: 048
     Dates: start: 20140518, end: 20140811
  3. SOVALDI [Suspect]
     Active Substance: SOFOSBUVIR
     Indication: CHRONIC HEPATITIS C
     Dosage: TOTAL DAILY DOSE 400MG
     Route: 048
     Dates: start: 20140618, end: 20140811

REACTIONS (4)
  - Chills [Unknown]
  - Product quality issue [Unknown]
  - Asthenia [Not Recovered/Not Resolved]
  - Influenza like illness [Not Recovered/Not Resolved]

NARRATIVE: CASE EVENT DATE: 2014
